FAERS Safety Report 24557858 (Version 1)
Quarter: 2024Q4

REPORT INFORMATION
  Report Type: Report from Study
  Country: CA (occurrence: CA)
  Receive Date: 20241028
  Receipt Date: 20241028
  Transmission Date: 20250114
  Serious: Yes (Other)
  Sender: BAUSCH AND LOMB
  Company Number: CA-BAUSCH-BL-2024-012328

PATIENT
  Age: 67 Year
  Sex: Male

DRUGS (2)
  1. SILIQ [Suspect]
     Active Substance: BRODALUMAB
     Indication: Psoriasis
     Dosage: 210MG/1.5ML, (AT WEEK 0, 1 AND 2), MISSED DOSE ON 29/JUL/2024
     Route: 058
     Dates: start: 20240722, end: 20240805
  2. SILIQ [Suspect]
     Active Substance: BRODALUMAB
     Dosage: 210MG/1.5ML, Q2 WEEKS
     Route: 058
     Dates: start: 2024

REACTIONS (4)
  - Schizophrenia [Not Recovered/Not Resolved]
  - Depression [Not Recovered/Not Resolved]
  - Intentional dose omission [Unknown]
  - Product dose omission issue [Unknown]

NARRATIVE: CASE EVENT DATE: 20240101
